FAERS Safety Report 10213612 (Version 1)
Quarter: 2014Q2

REPORT INFORMATION
  Report Type: Spontaneous
  Country: US (occurrence: None)
  Receive Date: 20140529
  Receipt Date: 20140529
  Transmission Date: 20141212
  Serious: Yes (Other)
  Sender: FDA-Public Use
  Company Number: FK201401886

PATIENT
  Age: 17 Year
  Sex: Male

DRUGS (4)
  1. CISPLATIN [Suspect]
     Indication: OSTEOSARCOMA
     Dosage: CUMULATIVE DOSE
  2. IFOSFAMIDE [Suspect]
     Indication: OSTEOSARCOMA
     Dosage: DOSE
  3. DOXORUBICIN [Suspect]
     Indication: OSTEOSARCOMA
     Dosage: CUMULATIVE DOSE?
  4. METHOTREXATE (MANUFACTURER UNKNOWN) (METHOTREXATE) (METHOTREXATE) [Suspect]
     Indication: OSTEOSARCOMA
     Dosage: 12 DOSE

REACTIONS (6)
  - Testicular disorder [None]
  - Semen analysis abnormal [None]
  - Azoospermia [None]
  - Blood follicle stimulating hormone increased [None]
  - Blood luteinising hormone increased [None]
  - Erectile dysfunction [None]
